FAERS Safety Report 5577768-4 (Version None)
Quarter: 2007Q4

REPORT INFORMATION
  Report Type: 
  Country: None (occurrence: None)
  Receive Date: 20071227
  Receipt Date: 20071218
  Transmission Date: 20080405
  Serious: Yes (Hospitalization, Other)
  Sender: FDA-Public Use
  Company Number: 231419J07USA

PATIENT
  Age: 65 Year
  Sex: Female
  Weight: 77.1115 kg

DRUGS (5)
  1. REBIF [Suspect]
     Indication: MULTIPLE SCLEROSIS
     Dosage: 44 MCG, 3 IN 1 WEEKS, SUBCUTANEOUS
     Route: 058
     Dates: start: 20040901, end: 20070101
  2. ZESTRIL [Concomitant]
  3. WELLBUTRIN [Concomitant]
  4. CRESTOR [Concomitant]
  5. REQUIP [Concomitant]

REACTIONS (2)
  - COLON CANCER STAGE III [None]
  - RECTAL HAEMORRHAGE [None]
